FAERS Safety Report 5321379-2 (Version None)
Quarter: 2007Q2

REPORT INFORMATION
  Report Type: 
  Country: None (occurrence: None)
  Receive Date: 20070504
  Receipt Date: 20070430
  Transmission Date: 20071010
  Serious: Yes (Other)
  Sender: FDA-Public Use
  Company Number: 2007SP008210

PATIENT
  Age: 84 Year
  Sex: Female

DRUGS (2)
  1. INTEGRILIN [Suspect]
     Indication: DRUG USE FOR UNKNOWN INDICATION
  2. LOVENOX [Suspect]
     Indication: DRUG USE FOR UNKNOWN INDICATION

REACTIONS (1)
  - THROMBOSIS [None]
